FAERS Safety Report 8240614 (Version 3)
Quarter: 2013Q2

REPORT INFORMATION
  Report Type: Spontaneous
  Country: US (occurrence: None)
  Receive Date: 20111104
  Receipt Date: 20130327
  Transmission Date: 20140414
  Serious: Yes (Other)
  Sender: FDA-Public Use
  Company Number: 2011-4279

PATIENT
  Age: 64 Year
  Sex: Female
  Weight: 74 kg

DRUGS (8)
  1. SOMATULINE DEPOT [Suspect]
     Indication: ACROMEGALY
     Route: 058
     Dates: start: 201004
  2. METFORMIN HYDROCHLORIDE [Concomitant]
  3. LISINOPRIL/HCTZ (PRINZIDE /00977901/) [Concomitant]
  4. METOPROLOL TARTRATE [Concomitant]
  5. AMLODIPINE [Concomitant]
  6. SIMVASTATIN [Concomitant]
  7. CABERGOLINE [Concomitant]
  8. VENLAFAXINE [Concomitant]

REACTIONS (6)
  - HYPERPLASIA [None]
  - UTERINE DISORDER [None]
  - FLUSHING [None]
  - FLATULENCE [None]
  - DISEASE RECURRENCE [None]
  - Endometrial hyperplasia [None]
